FAERS Safety Report 5888432-6 (Version None)
Quarter: 2008Q3

REPORT INFORMATION
  Report Type: 
  Country: None (occurrence: None)
  Receive Date: 20080918
  Receipt Date: 20080909
  Transmission Date: 20090109
  Serious: Yes (Other)
  Sender: FDA-Public Use
  Company Number: US-PFIZER INC-2008075910

PATIENT
  Sex: Female

DRUGS (2)
  1. LIPITOR [Suspect]
  2. PROCARDIA XL [Suspect]

REACTIONS (1)
  - DEATH [None]
